FAERS Safety Report 8557781-5 (Version None)
Quarter: 2012Q3

REPORT INFORMATION
  Report Type: 
  Country: None (occurrence: None)
  Receive Date: 20120801
  Receipt Date: 20120723
  Transmission Date: 20120928
  Serious: Yes (Hospitalization)
  Sender: FDA-Public Use
  Company Number: GB-ROCHE-1091885

PATIENT
  Sex: Female
  Weight: 57 kg

DRUGS (1)
  1. MABTHERA [Suspect]
     Indication: RHEUMATOID ARTHRITIS
     Dates: start: 20100514

REACTIONS (6)
  - PNEUMONIA [None]
  - LACERATION [None]
  - CELLULITIS [None]
  - ACUTE MYOCARDIAL INFARCTION [None]
  - SEPSIS [None]
  - CEREBROVASCULAR ACCIDENT [None]
